FAERS Safety Report 15740637 (Version 1)
Quarter: 2018Q4

REPORT INFORMATION
  Report Type: Spontaneous
  Country: US (occurrence: US)
  Receive Date: 20181219
  Receipt Date: 20181219
  Transmission Date: 20190205
  Serious: No
  Sender: FDA-Public Use
  Company Number: US-GLAXOSMITHKLINE-US2018225652

PATIENT
  Sex: Female

DRUGS (1)
  1. ABREVA [Suspect]
     Active Substance: DOCOSANOL
     Indication: PRODUCT USED FOR UNKNOWN INDICATION
     Dosage: UNK

REACTIONS (7)
  - Oral discomfort [Unknown]
  - Drug ineffective [Unknown]
  - Condition aggravated [Unknown]
  - Paraesthesia oral [Unknown]
  - Chapped lips [Unknown]
  - Lip dry [Unknown]
  - Lip swelling [Unknown]
